FAERS Safety Report 14700349 (Version 1)
Quarter: 2018Q1

REPORT INFORMATION
  Report Type: Spontaneous
  Country: US (occurrence: US)
  Receive Date: 20180330
  Receipt Date: 20180330
  Transmission Date: 20180509
  Serious: Yes (Hospitalization)
  Sender: FDA-Public Use
  Company Number: None

PATIENT
  Age: 60 Year
  Sex: Female
  Weight: 61.23 kg

DRUGS (11)
  1. MULTI VITA [Concomitant]
  2. VITAMIN C [Concomitant]
     Active Substance: ASCORBIC ACID
  3. PROBIOTIC [Concomitant]
     Active Substance: PROBIOTICS NOS
  4. HYDROCORTISONE. [Concomitant]
     Active Substance: HYDROCORTISONE
  5. FLORINEF ACETATE [Concomitant]
     Active Substance: FLUDROCORTISONE ACETATE
  6. CALCIUM [Concomitant]
     Active Substance: CALCIUM
  7. NITROFURANTOIN MONOHYDRATE MACROCRYSTALS [Suspect]
     Active Substance: NITROFURANTOIN\NITROFURANTOIN MONOHYDRATE
     Indication: URINARY TRACT INFECTION
     Route: 048
     Dates: start: 20180124, end: 20180124
  8. CRANBERRY. [Concomitant]
     Active Substance: CRANBERRY
  9. VITA D /00318501/ [Concomitant]
     Active Substance: CHOLECALCIFEROL
  10. BIOTIN [Concomitant]
     Active Substance: BIOTIN
  11. MELATONIN [Suspect]
     Active Substance: MELATONIN

REACTIONS (11)
  - Vomiting [None]
  - Diarrhoea [None]
  - Pneumonia [None]
  - Restlessness [None]
  - Dyspnoea [None]
  - Cystitis [None]
  - Nausea [None]
  - Headache [None]
  - Chills [None]
  - Cough [None]
  - Tremor [None]

NARRATIVE: CASE EVENT DATE: 20180124
